FAERS Safety Report 18145256 (Version 1)
Quarter: 2020Q3

REPORT INFORMATION
  Report Type: Spontaneous
  Country: US (occurrence: US)
  Receive Date: 20200813
  Receipt Date: 20200813
  Transmission Date: 20201103
  Serious: Yes (Death)
  Sender: FDA-Public Use
  Company Number: None

PATIENT
  Age: 78 Year
  Sex: Male

DRUGS (10)
  1. HUMALOG KWIKPEN [Concomitant]
     Active Substance: INSULIN LISPRO
  2. CLONIDINE 0.3MG TABLETS [Concomitant]
  3. FAMOTIDINE 20MG TABLETS [Concomitant]
     Active Substance: FAMOTIDINE
  4. METOPROLOL TARTRATE 100MG TABLETS [Concomitant]
  5. RESTASIS 0.05% MULTIDOSE OPHTHALMIC SOLUTION [Concomitant]
  6. AMLODIPINE BESYLATE 10MG TABLETS [Concomitant]
     Active Substance: AMLODIPINE BESYLATE
  7. FUROSEMIDE 80MG TABLETS [Concomitant]
     Active Substance: FUROSEMIDE SODIUM
  8. VELTASSA [Suspect]
     Active Substance: PATIROMER
     Indication: HYPERKALAEMIA
     Route: 048
     Dates: start: 20190402, end: 20200810
  9. HYDRALAZINE [Concomitant]
     Active Substance: HYDRALAZINE HYDROCHLORIDE
  10. CALCIUM ACETATE 667MG CAPSULES [Concomitant]

REACTIONS (1)
  - Death [None]

NARRATIVE: CASE EVENT DATE: 20200810
